FAERS Safety Report 17865663 (Version 2)
Quarter: 2021Q3

REPORT INFORMATION
  Report Type: Spontaneous
  Country: US (occurrence: US)
  Receive Date: 20200605
  Receipt Date: 20210805
  Transmission Date: 20211014
  Serious: Yes (Other)
  Sender: FDA-Public Use
  Company Number: US-NAPPMUNDI-USA-2020-0151755

PATIENT
  Sex: Female

DRUGS (2)
  1. OXYCODONE HCL CR TABLETS (SIMILAR TO NDA 22?272) [Suspect]
     Active Substance: OXYCODONE HYDROCHLORIDE
     Indication: PRODUCT USED FOR UNKNOWN INDICATION
     Dosage: 15 MG, Q6H
     Route: 048
     Dates: start: 1995
  2. OXYCONTIN [Suspect]
     Active Substance: OXYCODONE HYDROCHLORIDE
     Indication: PRODUCT USED FOR UNKNOWN INDICATION
     Dosage: UNKNOWN
     Route: 048

REACTIONS (17)
  - Coordination abnormal [Unknown]
  - Hypopnoea [Unknown]
  - Quality of life decreased [Unknown]
  - Malaise [Unknown]
  - Irritability [Unknown]
  - Anger [Unknown]
  - Mental impairment [Unknown]
  - Constipation [Unknown]
  - Anxiety [Unknown]
  - Depression [Unknown]
  - Unevaluable event [Unknown]
  - Libido decreased [Unknown]
  - Spinal fusion surgery [Unknown]
  - Apathy [Unknown]
  - Drug dependence [Not Recovered/Not Resolved]
  - Mood swings [Unknown]
  - Fatigue [Unknown]
